FAERS Safety Report 8858767 (Version 2)
Quarter: 2014Q2

REPORT INFORMATION
  Report Type: Spontaneous
  Country: FR (occurrence: FR)
  Receive Date: 20121024
  Receipt Date: 20131018
  Transmission Date: 20141212
  Serious: Yes (Hospitalization)
  Sender: FDA-Public Use
  Company Number: FR-PFIZER INC-2012263833

PATIENT
  Age: 43 Year
  Sex: Male

DRUGS (11)
  1. VANCOMYCIN HCL [Suspect]
     Indication: INDUCTION OF ANAESTHESIA
     Dosage: UNK
     Route: 042
     Dates: start: 20120919, end: 20120919
  2. MIDAZOLAM HCL [Suspect]
     Indication: INDUCTION OF ANAESTHESIA
     Dosage: UNK
     Route: 042
     Dates: start: 20120919, end: 20120919
  3. TRACRIUM [Suspect]
     Indication: INDUCTION OF ANAESTHESIA
     Dosage: UNK
     Route: 042
     Dates: start: 20120919, end: 20120919
  4. KETOPROFEN [Suspect]
     Indication: PAIN
     Dosage: UNK
     Dates: start: 20120919, end: 20120920
  5. SUFENTA [Suspect]
     Indication: INDUCTION OF ANAESTHESIA
     Dosage: UNK
     Route: 042
     Dates: start: 20120919, end: 20120919
  6. PENTOTHAL [Suspect]
     Indication: INDUCTION OF ANAESTHESIA
     Dosage: UNK
     Route: 042
     Dates: start: 20120919, end: 20120919
  7. KETAMINE [Suspect]
     Indication: INDUCTION OF ANAESTHESIA
     Dosage: UNK
     Route: 042
     Dates: start: 20120919, end: 20120919
  8. ACUPAN [Suspect]
     Indication: PAIN
     Dosage: UNK
     Dates: start: 20120919, end: 20120920
  9. PERFALGAN [Suspect]
     Indication: PAIN
     Dosage: UNK
     Route: 042
     Dates: start: 20120919, end: 20120920
  10. ATARAX [Concomitant]
  11. XANAX [Concomitant]

REACTIONS (1)
  - Pancreatitis acute [Recovering/Resolving]
